FAERS Safety Report 6678058-9 (Version None)
Quarter: 2010Q2

REPORT INFORMATION
  Report Type: 
  Country: None (occurrence: None)
  Receive Date: 20100412
  Receipt Date: 20100401
  Transmission Date: 20101027
  Serious: Yes (Other)
  Sender: FDA-Public Use
  Company Number: PHHY2010CA19384

PATIENT
  Sex: Male

DRUGS (7)
  1. EXELON [Suspect]
     Indication: DEMENTIA ALZHEIMER'S TYPE
     Dosage: 10 CM2 PATCH DAILY
     Route: 062
     Dates: start: 20090318
  2. EXELON [Suspect]
     Route: 062
  3. NORVASC [Concomitant]
     Dosage: 5 MG HALF A TABLET
  4. ASPIRIN [Concomitant]
     Dosage: 80 MG 1 TABLET DAILY
  5. LIPITOR [Concomitant]
     Dosage: 10 MG DAILY
  6. MONOCOR [Concomitant]
     Dosage: 5 MG DAILY
  7. VASOTEC [Concomitant]
     Dosage: 20 MG, BID

REACTIONS (2)
  - BUNDLE BRANCH BLOCK LEFT [None]
  - SYNCOPE [None]
